FAERS Safety Report 10013530 (Version 1)
Quarter: 2014Q1

REPORT INFORMATION
  Report Type: Spontaneous
  Country: US (occurrence: US)
  Receive Date: 20140314
  Receipt Date: 20140314
  Transmission Date: 20141002
  Serious: Yes (Death)
  Sender: FDA-Public Use
  Company Number: US-ROCHE-1364290

PATIENT
  Sex: Female
  Weight: 96.16 kg

DRUGS (1)
  1. XELODA [Suspect]
     Indication: BILE DUCT CANCER
     Dosage: 14 DAYS ON AND 7 DAYS OFF.
     Route: 048
     Dates: start: 20140225

REACTIONS (1)
  - Death [Fatal]
